FAERS Safety Report 23790150 (Version 1)
Quarter: 2024Q2

REPORT INFORMATION
  Report Type: Report from Study
  Country: CA (occurrence: CA)
  Receive Date: 20240426
  Receipt Date: 20240426
  Transmission Date: 20240716
  Serious: Yes (Other)
  Sender: FDA-Public Use
  Company Number: CA-ABBVIE-5735410

PATIENT
  Sex: Female

DRUGS (1)
  1. HUMIRA [Suspect]
     Active Substance: ADALIMUMAB
     Indication: Crohn^s disease
     Route: 058
     Dates: start: 20170217

REACTIONS (4)
  - Large intestinal obstruction [Unknown]
  - Large intestinal stenosis [Unknown]
  - Peripheral swelling [Unknown]
  - Systemic lupus erythematosus [Unknown]
